FAERS Safety Report 16211518 (Version 2)
Quarter: 2020Q1

REPORT INFORMATION
  Report Type: Report from Study
  Country: IN (occurrence: IN)
  Receive Date: 20190418
  Receipt Date: 20200124
  Transmission Date: 20200409
  Serious: Yes (Death)
  Sender: FDA-Public Use
  Company Number: IN-ROCHE-2305647

PATIENT
  Sex: Female

DRUGS (1)
  1. SYNDYMA (BEVACIZUMAB) [Suspect]
     Active Substance: BEVACIZUMAB
     Indication: LUNG ADENOCARCINOMA
     Route: 042
     Dates: start: 20181105

REACTIONS (1)
  - Neoplasm malignant [Fatal]
